FAERS Safety Report 24292104 (Version 1)
Quarter: 2024Q3

REPORT INFORMATION
  Report Type: Spontaneous
  Country: US (occurrence: None)
  Receive Date: 20240906
  Receipt Date: 20240906
  Transmission Date: 20241016
  Serious: No
  Sender: DOMPE FARMACEUTICI
  Company Number: US-FARMAPROD-202307-2039

PATIENT
  Age: 80 Year
  Sex: Female
  Weight: 75.3 kg

DRUGS (41)
  1. OXERVATE [Suspect]
     Active Substance: CENEGERMIN-BKBJ
     Indication: Neurotrophic keratopathy
     Route: 047
     Dates: start: 20230706
  2. OXERVATE [Suspect]
     Active Substance: CENEGERMIN-BKBJ
  3. OXERVATE [Suspect]
     Active Substance: CENEGERMIN-BKBJ
  4. OXERVATE [Suspect]
     Active Substance: CENEGERMIN-BKBJ
  5. SYSTANE (HYPROMELLOSE 2910 (4000 MPA.S)) [Concomitant]
     Active Substance: HYPROMELLOSE 2910 (4000 MPA.S)
     Dosage: 0.3 %-0.4%
  6. DIETARY SUPPLEMENT\PROBIOTICS [Concomitant]
     Active Substance: DIETARY SUPPLEMENT\PROBIOTICS NOS
     Dosage: 10 BILLION CELL
  7. LYRICA [Concomitant]
     Active Substance: PREGABALIN
  8. MULTIVITAMIN-MINERAL [Concomitant]
  9. MONTELUKAST SODIUM [Concomitant]
     Active Substance: MONTELUKAST\MONTELUKAST SODIUM
  10. MELATONIN [Concomitant]
     Active Substance: MELATONIN
  11. LEVOTHYROXINE SODIUM [Concomitant]
     Active Substance: LEVOTHYROXINE SODIUM
  12. FIBER THERAPY (CALCIUM POLYCARBOPHIL) [Concomitant]
     Active Substance: CALCIUM POLYCARBOPHIL
  13. URIBEL [Concomitant]
     Active Substance: HYOSCYAMINE SULFATE\METHENAMINE\METHYLENE BLUE\PHENYL SALICYLATE\SODIUM PHOSPHATE, MONOBASIC, MONOHY
     Dosage: 118-10-36
  14. GLUCOSAMINE/CHONDROITIN [Concomitant]
  15. GARLIC [Concomitant]
     Active Substance: GARLIC
  16. UNSPECIFIED INGREDIENT [Concomitant]
     Active Substance: UNSPECIFIED INGREDIENT
     Dosage: 50 MM-100 MG
  17. COLLAGEN [Concomitant]
     Active Substance: COLLAGEN
     Dosage: 125-740 MG
  18. CALCIUM-MAGNESIUM-ZINC [Concomitant]
  19. AMLODIPINE BESYLATE [Concomitant]
     Active Substance: AMLODIPINE BESYLATE
  20. ALENDRONATE SODIUM [Concomitant]
     Active Substance: ALENDRONATE SODIUM
  21. ESTRADIOL [Concomitant]
     Active Substance: ESTRADIOL
  22. AZELASTINE HYDROCHLORIDE [Concomitant]
     Active Substance: AZELASTINE HYDROCHLORIDE
  23. TIZANIDINE HYDROCHLORIDE [Concomitant]
     Active Substance: TIZANIDINE HYDROCHLORIDE
  24. VITAMIN D2 [Concomitant]
     Active Substance: ERGOCALCIFEROL
  25. TRIMETHOPRIM [Concomitant]
     Active Substance: TRIMETHOPRIM
  26. LORATADINE [Concomitant]
     Active Substance: LORATADINE
  27. FUROSEMIDE [Concomitant]
     Active Substance: FUROSEMIDE
  28. CARVEDILOL [Concomitant]
     Active Substance: CARVEDILOL
  29. CARBAMAZEPINE [Concomitant]
     Active Substance: CARBAMAZEPINE
  30. LISINOPRIL [Concomitant]
     Active Substance: LISINOPRIL
  31. ASPIRIN [Concomitant]
     Active Substance: ASPIRIN
  32. ALBUTEROL SULFATE [Concomitant]
     Active Substance: ALBUTEROL SULFATE
     Dosage: HYDROFLUOROALKANE, AEROSOL WITH ADAPTER
  33. ALPRAZOLAM [Concomitant]
     Active Substance: ALPRAZOLAM
  34. SUCRALFATE [Concomitant]
     Active Substance: SUCRALFATE
  35. TRAMADOL HCL [Concomitant]
     Active Substance: TRAMADOL HYDROCHLORIDE
  36. TOPIRAMATE [Concomitant]
     Active Substance: TOPIRAMATE
  37. SUMATRIPTAN SUCCINATE [Concomitant]
     Active Substance: SUMATRIPTAN SUCCINATE
  38. ROSUVASTATIN CALCIUM [Concomitant]
     Active Substance: ROSUVASTATIN CALCIUM
  39. PANTOPRAZOLE SODIUM [Concomitant]
     Active Substance: PANTOPRAZOLE SODIUM
  40. SERUM TEARS [Concomitant]
  41. RYALTRIS [Concomitant]
     Active Substance: MOMETASONE FUROATE MONOHYDRATE\OLOPATADINE HYDROCHLORIDE
     Dosage: 665-25 MCG SPRAY/PUMP

REACTIONS (13)
  - Inappropriate schedule of product administration [Unknown]
  - Extra dose administered [Unknown]
  - Eye irritation [Not Recovered/Not Resolved]
  - Eye pain [Not Recovered/Not Resolved]
  - Eyelid pain [Not Recovered/Not Resolved]
  - Ocular hyperaemia [Not Recovered/Not Resolved]
  - Photophobia [Not Recovered/Not Resolved]
  - Dry eye [Unknown]
  - Cystitis [Unknown]
  - Wrong technique in product usage process [Unknown]
  - Neuralgia [Unknown]
  - Product storage error [Unknown]
  - Therapy interrupted [Unknown]

NARRATIVE: CASE EVENT DATE: 20230706
